FAERS Safety Report 8471362-3 (Version None)
Quarter: 2012Q2

REPORT INFORMATION
  Report Type: 
  Country: None (occurrence: None)
  Receive Date: 20120627
  Receipt Date: 20120618
  Transmission Date: 20120825
  Serious: Yes (Other)
  Sender: FDA-Public Use
  Company Number: US-ASTRAZENECA-2012SE28384

PATIENT
  Age: 58 Year
  Sex: Male
  Weight: 91.2 kg

DRUGS (2)
  1. SEROQUEL XR [Suspect]
     Indication: SLEEP DISORDER
     Route: 048
     Dates: end: 20120522
  2. SEROQUEL XR [Suspect]
     Indication: MAJOR DEPRESSION
     Route: 048
     Dates: end: 20120522

REACTIONS (7)
  - OFF LABEL USE [None]
  - CORONARY ARTERY OCCLUSION [None]
  - CARDIAC DISORDER [None]
  - PAIN [None]
  - NEOPLASM MALIGNANT [None]
  - INSOMNIA [None]
  - INTENTIONAL DRUG MISUSE [None]
